FAERS Safety Report 4431643-7 (Version None)
Quarter: 2004Q3

REPORT INFORMATION
  Report Type: 
  Country: None (occurrence: None)
  Receive Date: 20040721
  Receipt Date: 20040324
  Transmission Date: 20050211
  Serious: Yes (Hospitalization)
  Sender: FDA-Public Use
  Company Number: WAES 0403USA02212

PATIENT
  Age: 75 Year
  Sex: Female

DRUGS (5)
  1. VIOXX [Suspect]
     Dosage: 12.5 MG/PRN/PO
     Route: 048
  2. COUMADIN [Concomitant]
  3. PLAVIX [Concomitant]
  4. PROTONIX [Concomitant]
  5. HEPARIN [Concomitant]

REACTIONS (1)
  - GASTROINTESTINAL HAEMORRHAGE [None]
